FAERS Safety Report 6737432-2 (Version None)
Quarter: 2010Q2

REPORT INFORMATION
  Report Type: 
  Country: None (occurrence: None)
  Receive Date: 20100520
  Receipt Date: 20100507
  Transmission Date: 20101027
  Serious: Yes (Hospitalization)
  Sender: FDA-Public Use
  Company Number: 7004551

PATIENT
  Sex: Female

DRUGS (1)
  1. REBIF [Suspect]
     Indication: MULTIPLE SCLEROSIS
     Dates: start: 20070801, end: 20080801

REACTIONS (4)
  - INJECTION SITE INFECTION [None]
  - INJECTION SITE SCAB [None]
  - PAIN [None]
  - STAPHYLOCOCCAL INFECTION [None]
